FAERS Safety Report 18445608 (Version 1)
Quarter: 2020Q4

REPORT INFORMATION
  Report Type: Report from Study
  Country: CO (occurrence: CO)
  Receive Date: 20201030
  Receipt Date: 20201030
  Transmission Date: 20210114
  Serious: Yes (Other)
  Sender: FDA-Public Use
  Company Number: CO-JNJFOC-20201035227

PATIENT
  Age: 68 Year
  Sex: Male
  Weight: 65 kg

DRUGS (1)
  1. DARATUMUMAB [Suspect]
     Active Substance: DARATUMUMAB
     Indication: PLASMA CELL MYELOMA
     Route: 042
     Dates: start: 20201017

REACTIONS (2)
  - Infusion related reaction [Not Recovered/Not Resolved]
  - Suffocation feeling [Not Recovered/Not Resolved]

NARRATIVE: CASE EVENT DATE: 20201017
